FAERS Safety Report 19058901 (Version 1)
Quarter: 2021Q1

REPORT INFORMATION
  Report Type: Report from Study
  Country: US (occurrence: US)
  Receive Date: 20210325
  Receipt Date: 20210325
  Transmission Date: 20210420
  Serious: Yes (Other)
  Sender: FDA-Public Use
  Company Number: US-SHIRE-US202000174

PATIENT
  Sex: Female

DRUGS (7)
  1. GAMMAGARD LIQUID [Suspect]
     Active Substance: HUMAN IMMUNOGLOBULIN G
     Dosage: 14 GRAM, 1X/WEEK; VIAL 4 GM 20 ML
     Route: 058
  2. ZITHROMYCIN [Concomitant]
     Active Substance: AZITHROMYCIN ANHYDROUS
     Indication: PRODUCT USED FOR UNKNOWN INDICATION
  3. GAMMAGARD LIQUID [Suspect]
     Active Substance: HUMAN IMMUNOGLOBULIN G
     Indication: IMMUNODEFICIENCY COMMON VARIABLE
     Dosage: 14 GRAM, 1X/WEEK; VIAL 8 GM 40 ML
     Route: 058
     Dates: start: 20171205
  4. GAMMAGARD LIQUID [Suspect]
     Active Substance: HUMAN IMMUNOGLOBULIN G
     Dosage: 14 GRAM, 1X/WEEK; VIAL 2 GM 10 ML
     Route: 058
  5. PREDNISONE. [Concomitant]
     Active Substance: PREDNISONE
     Indication: PRODUCT USED FOR UNKNOWN INDICATION
  6. AMOXICILLIN CLAVULANIC ACID [Concomitant]
     Active Substance: AMOXICILLIN\CLAVULANIC ACID
     Indication: PRODUCT USED FOR UNKNOWN INDICATION
  7. DOXYCYCLINE. [Concomitant]
     Active Substance: DOXYCYCLINE
     Indication: PRODUCT USED FOR UNKNOWN INDICATION

REACTIONS (16)
  - Upper respiratory tract infection [Unknown]
  - Lung disorder [Unknown]
  - Product storage error [Unknown]
  - Sinusitis [Unknown]
  - Incorrect drug administration rate [Unknown]
  - Aphonia [Unknown]
  - Dyspnoea [Unknown]
  - Injection site pain [Unknown]
  - Hypoaesthesia [Unknown]
  - Hernia [Unknown]
  - Back pain [Unknown]
  - Nephrolithiasis [Unknown]
  - Ear pain [Unknown]
  - Illness [Unknown]
  - Arterial disorder [Unknown]
  - Respiratory tract infection [Unknown]
